FAERS Safety Report 6119296-3 (Version None)
Quarter: 2009Q1

REPORT INFORMATION
  Report Type: 
  Country: None (occurrence: None)
  Receive Date: 20090316
  Receipt Date: 20090304
  Transmission Date: 20090719
  Serious: Yes (Other)
  Sender: FDA-Public Use
  Company Number: PHHY2009BR07889

PATIENT
  Sex: Female
  Weight: 70 kg

DRUGS (1)
  1. DIOVAN [Suspect]
     Dosage: UNK

REACTIONS (3)
  - ANGIOPATHY [None]
  - BLOOD PRESSURE INCREASED [None]
  - DRUG INEFFECTIVE [None]
